FAERS Safety Report 8828969 (Version 3)
Quarter: 2012Q4

REPORT INFORMATION
  Report Type: 
  Country: GB (occurrence: GB)
  Receive Date: 20121009
  Receipt Date: 20121105
  Transmission Date: 20130627
  Serious: Yes (Hospitalization)
  Sender: FDA-Public Use
  Company Number: GB-BIOGENIDEC-2012BI042066

PATIENT
  Age: 51 Year
  Sex: Female

DRUGS (8)
  1. TYSABRI [Suspect]
     Indication: PRODUCT USED FOR UNKNOWN INDICATION
     Dates: start: 200904
  2. TRAZADONE [Concomitant]
     Indication: HYPERSOMNIA
  3. OMEPRAZOLE [Concomitant]
  4. TIZANIDINE [Concomitant]
  5. SUMATRIPTAN [Concomitant]
  6. TRAMADOL [Concomitant]
  7. SENNA [Concomitant]
  8. MOLAXOLE [Concomitant]

REACTIONS (1)
  - Invasive ductal breast carcinoma [Unknown]
